FAERS Safety Report 7707446-4 (Version None)
Quarter: 2011Q3

REPORT INFORMATION
  Report Type: 
  Country: None (occurrence: None)
  Receive Date: 20110824
  Receipt Date: 20110817
  Transmission Date: 20111222
  Serious: Yes (Hospitalization)
  Sender: FDA-Public Use
  Company Number: JP-CEPHALON-2011004420

PATIENT
  Age: 82 Year
  Sex: Male
  Weight: 62 kg

DRUGS (2)
  1. BENDAMUSTINE HCL [Suspect]
     Route: 042
     Dates: start: 20110802, end: 20110802
  2. BENDAMUSTINE HCL [Suspect]
     Indication: MANTLE CELL LYMPHOMA
     Route: 042
     Dates: start: 20110713

REACTIONS (2)
  - PYREXIA [None]
  - DRUG ERUPTION [None]
